FAERS Safety Report 18786948 (Version 2)
Quarter: 2021Q2

REPORT INFORMATION
  Report Type: Report from Study
  Country: CA (occurrence: CA)
  Receive Date: 20210126
  Receipt Date: 20210511
  Transmission Date: 20210717
  Serious: Yes (Other)
  Sender: FDA-Public Use
  Company Number: CA-TAKEDA-CA202022713

PATIENT
  Age: 70 Year
  Sex: Male

DRUGS (4)
  1. FUROSEMIDE. [Concomitant]
     Active Substance: FUROSEMIDE
     Indication: SWELLING
     Dosage: 20 MILLIGRAM
     Route: 065
  2. CUVITRU [Suspect]
     Active Substance: HUMAN IMMUNOGLOBULIN G
     Indication: SECONDARY IMMUNODEFICIENCY
     Dosage: 8 GRAM, 1X/WEEK
     Route: 065
     Dates: start: 20200504
  3. CHEMO C [Concomitant]
     Active Substance: ASCORBIC ACID
     Route: 065
  4. POMALIDOMIDE [Concomitant]
     Active Substance: POMALIDOMIDE
     Dosage: 2 MILLIGRAM
     Route: 065

REACTIONS (9)
  - Dry eye [Unknown]
  - Eye irritation [Unknown]
  - Joint swelling [Unknown]
  - Cataract [Unknown]
  - Vision blurred [Unknown]
  - Dyspnoea [Unknown]
  - Pyrexia [Unknown]
  - Malaise [Unknown]
  - Product dose omission issue [Recovered/Resolved]

NARRATIVE: CASE EVENT DATE: 2020
